FAERS Safety Report 13974677 (Version 1)
Quarter: 2017Q3

REPORT INFORMATION
  Report Type: Spontaneous
  Country: US (occurrence: US)
  Receive Date: 20170915
  Receipt Date: 20170915
  Transmission Date: 20171128
  Serious: Yes (Death)
  Sender: FDA-Public Use
  Company Number: US-HQ SPECIALTY-US-2017INT000334

PATIENT

DRUGS (5)
  1. CISPLATIN. [Suspect]
     Active Substance: CISPLATIN
     Indication: SQUAMOUS CELL CARCINOMA OF HEAD AND NECK
     Dosage: 75 MG/M2, DAY 1
     Route: 042
  2. PACLITAXEL. [Suspect]
     Active Substance: PACLITAXEL
     Indication: SQUAMOUS CELL CARCINOMA OF HEAD AND NECK
     Dosage: 100 M/M2, WEEKLY ON DAYS 1, 8, AND 15
     Route: 042
  3. CETUXIMAB. [Suspect]
     Active Substance: CETUXIMAB
     Indication: SQUAMOUS CELL CARCINOMA OF HEAD AND NECK
     Dosage: 400 MG/M2, ON DAY 1
     Route: 042
  4. CETUXIMAB. [Suspect]
     Active Substance: CETUXIMAB
     Dosage: 250 MG/M2, WEEKLY
     Route: 042
  5. FLUOROURACIL 5 FU [Suspect]
     Active Substance: FLUOROURACIL
     Indication: SQUAMOUS CELL CARCINOMA OF HEAD AND NECK
     Dosage: 75 MG/M2, DAILY ON DAYS 1-3
     Route: 042

REACTIONS (1)
  - Death [Fatal]
